FAERS Safety Report 19818865 (Version 2)
Quarter: 2021Q3

REPORT INFORMATION
  Report Type: Spontaneous
  Country: US (occurrence: US)
  Receive Date: 20210912
  Receipt Date: 20210928
  Transmission Date: 20211014
  Serious: No
  Sender: FDA-Public Use
  Company Number: US-AMGEN-USASP2021138397

PATIENT
  Age: 88 Year
  Sex: Female
  Weight: 64.4 kg

DRUGS (1)
  1. PROLIA [Suspect]
     Active Substance: DENOSUMAB
     Indication: OSTEOPOROSIS POSTMENOPAUSAL
     Dosage: UNK
     Route: 065
     Dates: start: 202010

REACTIONS (4)
  - Restless legs syndrome [Unknown]
  - Arthralgia [Unknown]
  - Pruritus [Unknown]
  - Jaw clicking [Unknown]

NARRATIVE: CASE EVENT DATE: 2021
